FAERS Safety Report 13585485 (Version 2)
Quarter: 2017Q4

REPORT INFORMATION
  Report Type: Spontaneous
  Country: US (occurrence: US)
  Receive Date: 20170526
  Receipt Date: 20171003
  Transmission Date: 20180320
  Serious: Yes (Other)
  Sender: FDA-Public Use
  Company Number: US-UCBSA-2017020052

PATIENT
  Sex: Female

DRUGS (2)
  1. VOTRIENT [Concomitant]
     Active Substance: PAZOPANIB HYDROCHLORIDE
     Indication: PRODUCT USED FOR UNKNOWN INDICATION
     Dosage: UNK
  2. CIMZIA [Suspect]
     Active Substance: CERTOLIZUMAB PEGOL
     Indication: CROHN^S DISEASE
     Dosage: 400 MG, EV 4 WEEKS, (NDC #: 50474-700-62)
     Route: 058
     Dates: start: 20100420

REACTIONS (2)
  - Papillary renal cell carcinoma [Not Recovered/Not Resolved]
  - Pancreatic mass [Unknown]

NARRATIVE: CASE EVENT DATE: 2017
